FAERS Safety Report 14452598 (Version 2)
Quarter: 2018Q1

REPORT INFORMATION
  Report Type: Spontaneous
  Country: US (occurrence: US)
  Receive Date: 20180129
  Receipt Date: 20180315
  Transmission Date: 20180509
  Serious: No
  Sender: FDA-Public Use
  Company Number: US-INCYTE CORPORATION-2018IN000540

PATIENT

DRUGS (1)
  1. JAKAFI [Suspect]
     Active Substance: RUXOLITINIB
     Indication: MYELOFIBROSIS
     Dosage: 25 MG, BID
     Route: 048

REACTIONS (8)
  - Drug dose omission [Unknown]
  - Nausea [Recovered/Resolved]
  - Rash [Unknown]
  - Pruritus [Unknown]
  - Night sweats [Unknown]
  - Chest pain [Recovered/Resolved]
  - Drug ineffective [Recovered/Resolved]
  - Headache [Unknown]

NARRATIVE: CASE EVENT DATE: 20180117
